FAERS Safety Report 8151370-2 (Version None)
Quarter: 2012Q1

REPORT INFORMATION
  Report Type: 
  Country: None (occurrence: None)
  Receive Date: 20120220
  Receipt Date: 20120213
  Transmission Date: 20120608
  Serious: Yes (Hospitalization, Disabling)
  Sender: FDA-Public Use
  Company Number: FR-ROCHE-1004178

PATIENT
  Sex: Male
  Weight: 79.087 kg

DRUGS (9)
  1. ASPIRIN [Concomitant]
  2. LERCANIDIPINE [Concomitant]
  3. RANIBIZUMAB [Suspect]
     Dates: start: 20110829, end: 20111003
  4. GLYBURIDE [Concomitant]
  5. RANIBIZUMAB [Suspect]
     Indication: DIABETIC RETINAL OEDEMA
     Dosage: DOSE:10MG/ML
     Route: 050
     Dates: start: 20110627, end: 20110627
  6. METFORMIN HCL [Concomitant]
  7. CLOPIDOGREL BISULFATE [Suspect]
     Indication: ISCHAEMIC CARDIOMYOPATHY
  8. VALSARTAN [Concomitant]
  9. ADANCOR [Concomitant]

REACTIONS (1)
  - VITREOUS HAEMORRHAGE [None]
